FAERS Safety Report 13836016 (Version 3)
Quarter: 2017Q3

REPORT INFORMATION
  Report Type: Spontaneous
  Country: VE (occurrence: VE)
  Receive Date: 20170804
  Receipt Date: 20170823
  Transmission Date: 20171127
  Serious: Yes (Hospitalization, Other)
  Sender: FDA-Public Use
  Company Number: VE-UCBSA-2017030367

PATIENT
  Age: 3 Year
  Sex: Female
  Weight: 14 kg

DRUGS (4)
  1. LAMICTAL [Concomitant]
     Active Substance: LAMOTRIGINE
     Dosage: 25 MG MORNING 50 MG NIGHT, 2X/DAY (BID), DILUTED IN 13 ML OF WATER
  2. KEPPRA [Suspect]
     Active Substance: LEVETIRACETAM
     Indication: OFF LABEL USE
  3. LAMICTAL [Concomitant]
     Active Substance: LAMOTRIGINE
     Indication: PRODUCT USED FOR UNKNOWN INDICATION
     Dosage: 25 MG, 2X/DAY (BID); STRENGTH: 50 MG
  4. KEPPRA [Suspect]
     Active Substance: LEVETIRACETAM
     Indication: BRAIN HYPOXIA
     Dosage: 2X/DAY 500 MG/2 OR 1000MG/4 TABLET, 250 MG IN AM AND 250 MG IN PM
     Route: 048
     Dates: start: 20140822, end: 2017

REACTIONS (5)
  - Intentional product misuse [Unknown]
  - Seizure [Not Recovered/Not Resolved]
  - Prescribed overdose [Unknown]
  - Off label use [Unknown]
  - Wrong technique in product usage process [Unknown]

NARRATIVE: CASE EVENT DATE: 20140822
